FAERS Safety Report 5205867-5 (Version None)
Quarter: 2007Q1

REPORT INFORMATION
  Report Type: 
  Country: None (occurrence: None)
  Receive Date: 20070108
  Receipt Date: 20061227
  Transmission Date: 20070707
  Serious: No
  Sender: FDA-Public Use
  Company Number: 2006-152333-NL

PATIENT
  Age: 93 Year
  Sex: Female

DRUGS (6)
  1. DEXAMETHASONE [Suspect]
     Dosage: INTRAVENOUS (NOS)
     Route: 042
     Dates: start: 20060831, end: 20060903
  2. ENOXAPARIN SODIUM [Suspect]
     Indication: IMMOBILE
     Dosage: 20 MG SUBCUTANEOUS
     Route: 058
     Dates: start: 20060829, end: 20060902
  3. NIFEDIPINE [Concomitant]
  4. AMOXICILLIN + CLAVULANATE POTASSIUM [Concomitant]
  5. METRONIDAZOLE [Concomitant]
  6. TRAZODONE HCL [Concomitant]

REACTIONS (2)
  - GENERAL PHYSICAL HEALTH DETERIORATION [None]
  - MELAENA [None]
